FAERS Safety Report 6948316-9 (Version None)
Quarter: 2010Q3

REPORT INFORMATION
  Report Type: 
  Country: None (occurrence: None)
  Receive Date: 20100828
  Receipt Date: 20091109
  Transmission Date: 20110219
  Serious: No
  Sender: FDA-Public Use
  Company Number: US-ABBOTT-09P-163-0602670-00

PATIENT
  Sex: Female
  Weight: 68.1 kg

DRUGS (8)
  1. NIASPAN [Suspect]
     Indication: BLOOD CHOLESTEROL INCREASED
     Dates: start: 20091006
  2. LEVOXYL [Concomitant]
     Indication: THYROID NEOPLASM
  3. SIMVASTATIN [Concomitant]
     Indication: BLOOD CHOLESTEROL INCREASED
     Dates: start: 20090523
  4. COUMADIN [Concomitant]
     Indication: CARDIAC MURMUR
     Dates: end: 20070101
  5. COUMADIN [Concomitant]
     Dosage: 1.5MG ON MON, TUES, WED, THURS; 1MG FRI, SAT, SUN
     Dates: start: 20090501
  6. METOPROLOL [Concomitant]
     Indication: CARDIAC MURMUR
  7. BENICAR [Concomitant]
     Indication: HYPERTENSION
  8. XALATAN [Concomitant]
     Indication: INTRAOCULAR PRESSURE INCREASED
     Route: 047

REACTIONS (2)
  - FLUSHING [None]
  - PRURITUS [None]
